FAERS Safety Report 6874471-5 (Version None)
Quarter: 2010Q3

REPORT INFORMATION
  Report Type: 
  Country: None (occurrence: None)
  Receive Date: 20100722
  Receipt Date: 20100722
  Transmission Date: 20110219
  Serious: No
  Sender: FDA-Public Use
  Company Number: None

PATIENT

DRUGS (1)
  1. NIZATIDINE [Suspect]
     Dosage: CAPSULE
     Route: 048

REACTIONS (3)
  - BLEPHAROSPASM [None]
  - MEDICATION ERROR [None]
  - PRODUCT SUBSTITUTION ISSUE [None]
